FAERS Safety Report 5811805-4 (Version None)
Quarter: 2008Q3

REPORT INFORMATION
  Report Type: 
  Country: None (occurrence: None)
  Receive Date: 20080715
  Receipt Date: 20080715
  Transmission Date: 20090109
  Serious: Yes (Life-Threatening)
  Sender: FDA-Public Use
  Company Number: None

PATIENT
  Age: 64 Year
  Sex: Female
  Weight: 68.0396 kg

DRUGS (2)
  1. NORVASC [Suspect]
     Indication: HYPERTENSION
     Dosage: 1 PILL
     Dates: start: 20080712, end: 20080712
  2. NORVASC [Suspect]
     Indication: PALPITATIONS
     Dosage: 1 PILL
     Dates: start: 20080712, end: 20080712

REACTIONS (4)
  - APHONIA [None]
  - OROPHARYNGEAL PAIN [None]
  - PHARYNGEAL OEDEMA [None]
  - SWOLLEN TONGUE [None]
